FAERS Safety Report 7369235-2 (Version None)
Quarter: 2011Q1

REPORT INFORMATION
  Report Type: 
  Country: None (occurrence: None)
  Receive Date: 20110323
  Receipt Date: 20110311
  Transmission Date: 20110831
  Serious: Yes (Life-Threatening, Other)
  Sender: FDA-Public Use
  Company Number: ES-SANOFI-AVENTIS-2011SA013318

PATIENT
  Age: 61 Year
  Sex: Male

DRUGS (3)
  1. INSULIN GLARGINE [Suspect]
     Indication: DIABETES MELLITUS
     Route: 058
     Dates: start: 20070601, end: 20110301
  2. METFORMIN [Concomitant]
     Indication: DIABETES MELLITUS
     Route: 048
  3. PENTOXIFYLLINE [Concomitant]
     Route: 048

REACTIONS (1)
  - HEPATIC NEOPLASM MALIGNANT [None]
